FAERS Safety Report 8267634-8 (Version None)
Quarter: 2012Q2

REPORT INFORMATION
  Report Type: 
  Country: None (occurrence: None)
  Receive Date: 20120409
  Receipt Date: 20120327
  Transmission Date: 20120825
  Serious: Yes (Other)
  Sender: FDA-Public Use
  Company Number: FR-ELI_LILLY_AND_COMPANY-FR201203001849

PATIENT
  Age: 44 Year
  Sex: Male

DRUGS (2)
  1. PROZAC [Suspect]
     Dosage: 0.5 DF, QD
     Route: 048
     Dates: start: 20040101
  2. PROZAC [Suspect]
     Dosage: UNK
     Dates: start: 20110101

REACTIONS (3)
  - AUTOIMMUNE HEPATITIS [None]
  - RENAL COLIC [None]
  - SERUM FERRITIN INCREASED [None]
